FAERS Safety Report 8080165-3 (Version None)
Quarter: 2012Q1

REPORT INFORMATION
  Report Type: 
  Country: None (occurrence: None)
  Receive Date: 20120130
  Receipt Date: 20120124
  Transmission Date: 20120608
  Serious: Yes (Hospitalization)
  Sender: FDA-Public Use
  Company Number: PHEH2011US01786

PATIENT
  Sex: Female
  Weight: 80 kg

DRUGS (2)
  1. EXJADE [Suspect]
     Indication: NEOPLASM
     Dosage: 2000 MG, DAILY
     Route: 048
     Dates: start: 20090519
  2. EXJADE [Suspect]
     Indication: IRON OVERLOAD

REACTIONS (7)
  - COUGH [None]
  - DYSPNOEA [None]
  - URINARY TRACT INFECTION [None]
  - DEHYDRATION [None]
  - FATIGUE [None]
  - ANAEMIA [None]
  - DIARRHOEA [None]
